FAERS Safety Report 9925224 (Version 1)
Quarter: 2014Q1

REPORT INFORMATION
  Report Type: Spontaneous
  Country: US (occurrence: US)
  Receive Date: 20140226
  Receipt Date: 20140226
  Transmission Date: 20141002
  Serious: Yes (Other)
  Sender: FDA-Public Use
  Company Number: US-BRACCO-009574

PATIENT
  Age: 65 Year
  Sex: Male
  Weight: 95 kg

DRUGS (6)
  1. LOPRESSOR [Concomitant]
  2. LEVOTHYROXINE [Concomitant]
  3. FINASTERIDE [Concomitant]
  4. ISOVUE 370 [Suspect]
     Indication: CATHETERISATION CARDIAC
     Route: 042
     Dates: start: 20130515, end: 20130515
  5. LISINOPRIL [Concomitant]
  6. LORATADINE [Concomitant]

REACTIONS (2)
  - Hypotension [Recovered/Resolved]
  - Rash generalised [Recovered/Resolved]
